FAERS Safety Report 12400103 (Version 10)
Quarter: 2017Q3

REPORT INFORMATION
  Report Type: Spontaneous
  Country: ES (occurrence: ES)
  Receive Date: 20160524
  Receipt Date: 20170720
  Transmission Date: 20171127
  Serious: Yes (Hospitalization)
  Sender: FDA-Public Use
  Company Number: ES-TAKEDA-2016MPI002773

PATIENT
  Age: 75 Year
  Sex: Female
  Weight: 65 kg

DRUGS (86)
  1. VELCADE [Suspect]
     Active Substance: BORTEZOMIB
     Dosage: 2.16 MG, UNK
     Route: 058
     Dates: start: 20150525
  2. PREDNISONE. [Suspect]
     Active Substance: PREDNISONE
     Indication: PLASMA CELL MYELOMA
     Dosage: 100 MG, UNK
     Route: 048
     Dates: start: 20150323, end: 20150326
  3. PREDNISONE. [Suspect]
     Active Substance: PREDNISONE
     Dosage: 100 MG, UNK
     Route: 048
     Dates: start: 20151201, end: 20151204
  4. MELPHALAN. [Suspect]
     Active Substance: MELPHALAN
     Dosage: 12 MG, UNK
     Route: 048
     Dates: start: 20150615, end: 20150618
  5. EUTIROX [Concomitant]
     Active Substance: LEVOTHYROXINE SODIUM
     Dosage: 88 MG, QD
     Route: 048
     Dates: start: 20150730
  6. EMCONCOR [Concomitant]
     Active Substance: BISOPROLOL FUMARATE
     Indication: HYPERTENSION
     Dosage: 2.5 MG, UNK
     Route: 048
     Dates: start: 2006, end: 20150713
  7. CRESTOR [Concomitant]
     Active Substance: ROSUVASTATIN CALCIUM
     Dosage: UNK
     Route: 065
  8. MST CONTINUS [Concomitant]
     Active Substance: MORPHINE SULFATE
     Indication: BACK PAIN
     Dosage: 10 MG, TID
     Route: 048
     Dates: start: 20150310
  9. ENALAPRIL [Concomitant]
     Active Substance: ENALAPRIL
     Indication: HYPERTENSION
     Dosage: 5 MG, QD
     Route: 048
     Dates: start: 20150310
  10. FOSFOMYCIN [Concomitant]
     Active Substance: FOSFOMYCIN
     Indication: URINARY TRACT INFECTION
     Dosage: 3 G, QD
     Route: 048
     Dates: start: 20150708, end: 20150709
  11. VELCADE [Suspect]
     Active Substance: BORTEZOMIB
     Dosage: 2.16 MG, UNK
     Route: 058
     Dates: start: 20150330
  12. VELCADE [Suspect]
     Active Substance: BORTEZOMIB
     Dosage: 2.16 MG, UNK
     Route: 058
     Dates: start: 20150402
  13. MELPHALAN. [Suspect]
     Active Substance: MELPHALAN
     Dosage: 12 MG, UNK
     Route: 048
     Dates: start: 20150907, end: 20150910
  14. CLOMETHIAZOLE [Concomitant]
     Active Substance: CLOMETHIAZOLE
     Dosage: 384 MG, UNK
     Route: 048
     Dates: start: 20150418, end: 20150419
  15. LINEZOLID. [Concomitant]
     Active Substance: LINEZOLID
     Indication: PNEUMONIA
     Dosage: UNK
     Route: 065
  16. DEPREXETIN [Concomitant]
     Indication: NEUROPATHY PERIPHERAL
     Dosage: 100 MG, UNK
     Route: 048
     Dates: start: 20150512, end: 20150512
  17. DEPREXETIN [Concomitant]
     Indication: DEPRESSION
     Dosage: UNK
     Route: 048
     Dates: start: 20150512, end: 20150512
  18. METOCLOPRAMIDE. [Concomitant]
     Active Substance: METOCLOPRAMIDE
     Indication: NAUSEA
     Dosage: 10 MG, UNK
     Route: 048
     Dates: start: 20150323
  19. VELCADE [Suspect]
     Active Substance: BORTEZOMIB
     Dosage: 2.16 MG, UNK
     Route: 058
     Dates: start: 20150615
  20. PREDNISONE. [Suspect]
     Active Substance: PREDNISONE
     Dosage: 100 MG, UNK
     Route: 048
     Dates: start: 20150907, end: 20150910
  21. MELPHALAN. [Suspect]
     Active Substance: MELPHALAN
     Dosage: 12 MG, UNK
     Route: 048
     Dates: start: 20151019, end: 20151022
  22. MELPHALAN. [Suspect]
     Active Substance: MELPHALAN
     Dosage: 12 MG, UNK
     Route: 048
     Dates: start: 20151201, end: 20151204
  23. LEVOFLOXACIN. [Concomitant]
     Active Substance: LEVOFLOXACIN
     Indication: FEBRILE NEUTROPENIA
     Dosage: 500 MG, UNK
     Route: 042
     Dates: start: 20150407, end: 20150407
  24. TRAZODONE [Concomitant]
     Active Substance: TRAZODONE HYDROCHLORIDE
     Indication: NEUROPATHY PERIPHERAL
     Dosage: UNK
     Route: 065
  25. RIVOTRIL [Concomitant]
     Active Substance: CLONAZEPAM
     Indication: NEUROPATHY PERIPHERAL
     Dosage: 0.5 MG, UNK
     Route: 048
     Dates: start: 20150427, end: 20150511
  26. LYRICA [Concomitant]
     Active Substance: PREGABALIN
     Indication: NEUROPATHY PERIPHERAL
     Dosage: 75 MG, BID
     Route: 048
  27. VELCADE [Suspect]
     Active Substance: BORTEZOMIB
     Dosage: 2.16 MG, UNK
     Route: 058
     Dates: start: 20150504
  28. VELCADE [Suspect]
     Active Substance: BORTEZOMIB
     Dosage: 1.64 MG, UNK
     Route: 058
     Dates: start: 20150622, end: 20150713
  29. VELCADE [Suspect]
     Active Substance: BORTEZOMIB
     Dosage: 1.63 MG, UNK
     Route: 058
     Dates: start: 20150824, end: 20150907
  30. VELCADE [Suspect]
     Active Substance: BORTEZOMIB
     Dosage: 1.66 MG, UNK
     Route: 058
     Dates: start: 20160301
  31. DARATUMUMAB [Concomitant]
     Active Substance: DARATUMUMAB
     Indication: PLASMA CELL MYELOMA
     Dosage: UNK
     Route: 042
  32. EUTIROX [Concomitant]
     Active Substance: LEVOTHYROXINE SODIUM
     Dosage: 88 MG, QD
     Route: 048
     Dates: start: 20150730
  33. EUTIROX [Concomitant]
     Active Substance: LEVOTHYROXINE SODIUM
     Dosage: 2.5 MG, QD
     Route: 048
     Dates: start: 2006, end: 20150713
  34. FOSFOMYCIN [Concomitant]
     Active Substance: FOSFOMYCIN
     Indication: DYSURIA
     Dosage: 3 G, UNK
     Route: 048
     Dates: start: 20150612, end: 20150614
  35. ATROVENT [Concomitant]
     Active Substance: IPRATROPIUM BROMIDE
     Indication: FEBRILE NEUTROPENIA
     Dosage: 500 MG, TID
     Route: 055
     Dates: start: 20150408, end: 20150429
  36. MIRTAZAPINE. [Concomitant]
     Active Substance: MIRTAZAPINE
     Indication: DEPRESSION
     Dosage: 30 MG, QD
     Route: 048
     Dates: start: 20150330
  37. VELCADE [Suspect]
     Active Substance: BORTEZOMIB
     Dosage: 1.64 MG, UNK
     Route: 058
     Dates: start: 20150914, end: 20151228
  38. PREDNISONE. [Suspect]
     Active Substance: PREDNISONE
     Dosage: 100 MG, UNK
     Route: 048
     Dates: start: 20150727, end: 20150730
  39. PREDNISONE. [Suspect]
     Active Substance: PREDNISONE
     Dosage: 100 MG, UNK
     Route: 048
     Dates: start: 20160111, end: 20160114
  40. MELPHALAN. [Suspect]
     Active Substance: MELPHALAN
     Dosage: 12 MG, UNK
     Route: 048
     Dates: start: 20150727, end: 20150730
  41. MELPHALAN. [Suspect]
     Active Substance: MELPHALAN
     Dosage: 12 MG, UNK
     Route: 048
     Dates: start: 20160111, end: 20160114
  42. CLOMETHIAZOLE [Concomitant]
     Active Substance: CLOMETHIAZOLE
     Indication: DELIRIUM
     Dosage: 192 MG, UNK
     Route: 048
     Dates: start: 20150416, end: 20150417
  43. EUTIROX [Concomitant]
     Active Substance: LEVOTHYROXINE SODIUM
     Dosage: 125 MG, QD
     Route: 048
     Dates: start: 20150415, end: 20150729
  44. AMILORIDE [Concomitant]
     Active Substance: AMILORIDE
     Indication: HYPERTENSION
     Dosage: 5 MG, QD
     Route: 048
     Dates: start: 2010
  45. FOSFOMYCIN [Concomitant]
     Active Substance: FOSFOMYCIN
     Dosage: 3 MG, UNK
     Route: 048
     Dates: start: 20150708, end: 20150709
  46. LEVOFLOXACIN. [Concomitant]
     Active Substance: LEVOFLOXACIN
     Indication: PNEUMONIA
     Dosage: 500 MG, UNK
     Route: 042
     Dates: start: 20150407, end: 20150407
  47. PIPERACILLIN AND TAZOBACTAM [Concomitant]
     Active Substance: PIPERACILLIN SODIUM\TAZOBACTAM SODIUM
     Indication: PNEUMONIA
     Dosage: UNK
     Route: 065
  48. TRAZODONE [Concomitant]
     Active Substance: TRAZODONE HYDROCHLORIDE
     Indication: GENERAL PHYSICAL HEALTH DETERIORATION
     Dosage: UNK
     Route: 065
  49. LYRICA [Concomitant]
     Active Substance: PREGABALIN
     Dosage: 225 MG, BID
     Route: 048
     Dates: start: 20150509, end: 20150512
  50. ATROVENT [Concomitant]
     Active Substance: IPRATROPIUM BROMIDE
     Indication: PNEUMONIA
     Dosage: 500 MG, TID
     Route: 055
     Dates: start: 20150408, end: 20150429
  51. VELCADE [Suspect]
     Active Substance: BORTEZOMIB
     Dosage: 2.16 MG, UNK
     Route: 058
     Dates: start: 20150511
  52. VELCADE [Suspect]
     Active Substance: BORTEZOMIB
     Dosage: 2.16 MG, UNK
     Route: 058
     Dates: start: 20150601
  53. VELCADE [Suspect]
     Active Substance: BORTEZOMIB
     Dosage: 1.64 MG, UNK
     Route: 058
     Dates: start: 20150803, end: 20150817
  54. PREDNISONE. [Suspect]
     Active Substance: PREDNISONE
     Dosage: 100 MG, UNK
     Route: 048
     Dates: start: 20151019, end: 20151022
  55. BROMAZEPAM [Concomitant]
     Active Substance: BROMAZEPAM
     Indication: DELIRIUM
     Dosage: 1.5 MG, UNK
     Route: 048
     Dates: start: 20080205
  56. BROMAZEPAM [Concomitant]
     Active Substance: BROMAZEPAM
     Indication: ANXIETY
     Dosage: 1.5 MG, UNK
     Route: 048
     Dates: start: 20080205
  57. ATORVASTATIN [Concomitant]
     Active Substance: ATORVASTATIN
     Indication: DYSLIPIDAEMIA
     Dosage: 40 MG, QD
     Route: 048
     Dates: start: 20150310
  58. VELCADE [Suspect]
     Active Substance: BORTEZOMIB
     Indication: PLASMA CELL MYELOMA
     Dosage: 2.16 MG, UNK
     Route: 058
     Dates: start: 20150323
  59. VELCADE [Suspect]
     Active Substance: BORTEZOMIB
     Dosage: 2.16 MG, UNK
     Route: 058
     Dates: start: 20150326
  60. VELCADE [Suspect]
     Active Substance: BORTEZOMIB
     Dosage: 1.65 MG, UNK
     Route: 058
     Dates: start: 20160111, end: 20160223
  61. PREDNISONE. [Suspect]
     Active Substance: PREDNISONE
     Dosage: 100 MG, UNK
     Route: 048
     Dates: start: 20150504, end: 20150507
  62. MELPHALAN. [Suspect]
     Active Substance: MELPHALAN
     Indication: PLASMA CELL MYELOMA
     Dosage: 15 MG, UNK
     Route: 048
     Dates: start: 20150323, end: 20150326
  63. MELPHALAN. [Suspect]
     Active Substance: MELPHALAN
     Dosage: 12 MG, UNK
     Route: 048
     Dates: start: 20160223, end: 20160226
  64. LEVOMEPROMAZINE [Concomitant]
     Active Substance: LEVOMEPROMAZINE
     Indication: DELIRIUM
     Dosage: 3 MG, QD
     Route: 048
     Dates: start: 20150412, end: 20150416
  65. EUTIROX [Concomitant]
     Active Substance: LEVOTHYROXINE SODIUM
     Indication: THYROIDECTOMY
     Dosage: 175 MG, QD
     Route: 048
     Dates: start: 201502, end: 20150414
  66. EUTIROX [Concomitant]
     Active Substance: LEVOTHYROXINE SODIUM
     Indication: HYPOTHYROIDISM
     Dosage: 125 MG, QD
     Route: 048
     Dates: start: 20150415, end: 20150729
  67. PLAVIX [Concomitant]
     Active Substance: CLOPIDOGREL BISULFATE
     Indication: HYPERTENSION
     Dosage: 75 MG, UNK
     Route: 048
     Dates: start: 2008
  68. HIDROXIL B12 B6 B1 [Concomitant]
     Active Substance: HYDROXOCOBALAMIN\PYRIDOXINE HYDROCHLORIDE\THIAMINE HYDROCHLORIDE
     Indication: PROPHYLAXIS
     Dosage: UNK
     Route: 048
     Dates: start: 20150408, end: 20150420
  69. PARACETAMOL [Concomitant]
     Active Substance: ACETAMINOPHEN
     Indication: FEBRILE NEUTROPENIA
     Dosage: 1000 MG, UNK
     Route: 048
     Dates: start: 20150407, end: 20150407
  70. CEFDITOREN [Concomitant]
     Active Substance: CEFDITOREN
     Indication: BRONCHITIS
     Dosage: 400 MG, BID
     Route: 048
     Dates: start: 20150509, end: 20150516
  71. FLUCONAZOLE. [Concomitant]
     Active Substance: FLUCONAZOLE
     Indication: CANDIDA INFECTION
     Dosage: UNK
     Route: 065
  72. LYRICA [Concomitant]
     Active Substance: PREGABALIN
     Dosage: 150 MG, BID
     Route: 048
     Dates: start: 20150427, end: 20150508
  73. LYRICA [Concomitant]
     Active Substance: PREGABALIN
     Dosage: 150 MG, BID
     Route: 048
     Dates: start: 20150513
  74. MERONEM [Concomitant]
     Active Substance: MEROPENEM
     Indication: PNEUMONIA
     Dosage: UNK
     Route: 065
  75. VELCADE [Suspect]
     Active Substance: BORTEZOMIB
     Dosage: 1.63 MG, UNK
     Route: 058
     Dates: start: 20150727, end: 20150727
  76. PREDNISONE. [Suspect]
     Active Substance: PREDNISONE
     Dosage: 100 MG, UNK
     Route: 048
     Dates: start: 20150615, end: 20150618
  77. PREDNISONE. [Suspect]
     Active Substance: PREDNISONE
     Dosage: 100 MG, UNK
     Route: 048
     Dates: start: 20160223, end: 20160226
  78. MELPHALAN. [Suspect]
     Active Substance: MELPHALAN
     Dosage: 12 MG, UNK
     Route: 048
     Dates: start: 20150504, end: 20150507
  79. PANTOPRAZOLE [Concomitant]
     Active Substance: PANTOPRAZOLE
     Indication: CHRONIC GASTRITIS
     Dosage: 20 MG, QD
     Route: 048
     Dates: start: 2012, end: 20150313
  80. PANTOPRAZOLE [Concomitant]
     Active Substance: PANTOPRAZOLE
     Dosage: 40 MG, QD
     Route: 048
     Dates: start: 20150323
  81. EUTIROX [Concomitant]
     Active Substance: LEVOTHYROXINE SODIUM
     Dosage: 175 MG, QD
     Route: 048
     Dates: start: 201502, end: 20150414
  82. ACYCLOVIR                          /00587301/ [Concomitant]
     Active Substance: ACYCLOVIR
     Indication: ANTIVIRAL PROPHYLAXIS
     Dosage: 800 MG, QD
     Route: 048
     Dates: start: 20150323
  83. NERVOBION                          /00176001/ [Concomitant]
     Dosage: UNK
     Route: 065
  84. G-CSF [Concomitant]
     Active Substance: GRANULOCYTE COLONY-STIMULATING FACTOR NOS
     Indication: NEUTROPENIA
     Dosage: 300 MG, QD
     Route: 058
     Dates: start: 20150402, end: 20150405
  85. FOSFOMYCIN [Concomitant]
     Active Substance: FOSFOMYCIN
     Dosage: 3 MG, UNK
     Route: 048
     Dates: start: 20150612, end: 20150614
  86. NATECAL [Concomitant]
     Active Substance: CALCIUM CARBONATE\CHOLECALCIFEROL
     Indication: OSTEOPOROSIS
     Dosage: UNK, QD
     Route: 048
     Dates: start: 201111

REACTIONS (8)
  - Febrile neutropenia [Recovered/Resolved]
  - Constipation [Unknown]
  - Neutropenia [Unknown]
  - Hyperthyroidism [Unknown]
  - Pneumonia [Recovered/Resolved]
  - Respiratory tract infection [Unknown]
  - Peripheral sensory neuropathy [Recovered/Resolved]
  - Diarrhoea [Unknown]

NARRATIVE: CASE EVENT DATE: 20150402
